FAERS Safety Report 10206357 (Version 2)
Quarter: 2014Q2

REPORT INFORMATION
  Report Type: Report from Study
  Country: AU (occurrence: AU)
  Receive Date: 20140530
  Receipt Date: 20140530
  Transmission Date: 20141212
  Serious: Yes (Death, Other)
  Sender: FDA-Public Use
  Company Number: PHHO2011AU019123

PATIENT
  Sex: Female

DRUGS (1)
  1. SOM230 [Suspect]
     Indication: PITUITARY-DEPENDENT CUSHING^S SYNDROME
     Dosage: 600 UG
     Route: 058

REACTIONS (2)
  - Cerebrovascular accident [Fatal]
  - Diabetes mellitus [Recovering/Resolving]
